FAERS Safety Report 19876927 (Version 1)
Quarter: 2021Q3

REPORT INFORMATION
  Report Type: Spontaneous
  Country: US (occurrence: US)
  Receive Date: 20210923
  Receipt Date: 20210923
  Transmission Date: 20211014
  Serious: Yes (Death, Hospitalization, Other)
  Sender: FDA-Public Use
  Company Number: US-AMGEN-USASP2021143599

PATIENT

DRUGS (2)
  1. BEVACIZUMAB. [Suspect]
     Active Substance: BEVACIZUMAB
     Indication: ADRENAL GLAND CANCER
     Dosage: UNK
     Route: 065
  2. BEVACIZUMAB. [Suspect]
     Active Substance: BEVACIZUMAB
     Indication: OFF LABEL USE

REACTIONS (6)
  - Hypertensive crisis [Unknown]
  - Intra-abdominal haemorrhage [Recovered/Resolved]
  - Adrenal insufficiency [Recovering/Resolving]
  - Off label use [Unknown]
  - Metastatic malignant melanoma [Fatal]
  - Retroperitoneal haematoma [Recovered/Resolved]
